FAERS Safety Report 16374922 (Version 1)
Quarter: 2019Q2

REPORT INFORMATION
  Report Type: Spontaneous
  Country: FR (occurrence: FR)
  Receive Date: 20190531
  Receipt Date: 20190531
  Transmission Date: 20190711
  Serious: Yes (Hospitalization)
  Sender: FDA-Public Use
  Company Number: FR-ROCHE-2328926

PATIENT
  Age: 55 Year
  Sex: Female
  Weight: 48 kg

DRUGS (1)
  1. TECENTRIQ [Suspect]
     Active Substance: ATEZOLIZUMAB
     Indication: LUNG ADENOCARCINOMA
     Dosage: LAST DOSE ON 18/APR/2019
     Route: 041
     Dates: start: 20190307

REACTIONS (2)
  - Troponin increased [Recovered/Resolved]
  - Myocarditis [Recovered/Resolved]

NARRATIVE: CASE EVENT DATE: 20190507
